FAERS Safety Report 10196356 (Version 1)
Quarter: 2014Q2

REPORT INFORMATION
  Report Type: Spontaneous
  Country: US (occurrence: None)
  Receive Date: 20140523
  Receipt Date: 20140523
  Transmission Date: 20141212
  Serious: Yes (Other)
  Sender: FDA-Public Use
  Company Number: None

PATIENT
  Age: 26 Year
  Sex: Male
  Weight: 65.77 kg

DRUGS (1)
  1. TOPIRAMATE 25MG GLENMARK PHARMACEUTICALS [Suspect]
     Dosage: 3 PILLS 3X PER DAY ORAL
     Route: 048

REACTIONS (4)
  - Nausea [None]
  - Flushing [None]
  - Headache [None]
  - Back pain [None]
